FAERS Safety Report 14494839 (Version 1)
Quarter: 2018Q1

REPORT INFORMATION
  Report Type: Spontaneous
  Country: ES (occurrence: ES)
  Receive Date: 20180206
  Receipt Date: 20180206
  Transmission Date: 20180509
  Serious: Yes (Other)
  Sender: FDA-Public Use
  Company Number: ES-TEVA-2018-ES-852793

PATIENT
  Age: 36 Year
  Sex: Female
  Weight: 86.4 kg

DRUGS (3)
  1. BUDESONIDA ALDO-UNION SUSPENSION PARA INHALACION POR NEBULIZADOR [Suspect]
     Active Substance: BUDESONIDE
     Route: 055
     Dates: start: 20171219
  2. SALBUTAMOL ALDO-UNION 100MICROGRAMOS/DOSIS SUSPENSION [Suspect]
     Active Substance: ALBUTEROL
     Route: 055
     Dates: start: 20171219
  3. AMOXICILLIN 875 MG, CLAVULANIC ACID 125 MG - FILM-COATED TABLET [Suspect]
     Active Substance: AMOXICILLIN\CLAVULANIC ACID
     Dosage: 3 DOSAGE FORMS DAILY;
     Route: 048
     Dates: start: 20171219

REACTIONS (1)
  - Diarrhoea haemorrhagic [Recovered/Resolved]

NARRATIVE: CASE EVENT DATE: 20171220
